FAERS Safety Report 8518529-3 (Version None)
Quarter: 2012Q3

REPORT INFORMATION
  Report Type: 
  Country: None (occurrence: None)
  Receive Date: 20120718
  Receipt Date: 20120709
  Transmission Date: 20120928
  Serious: Yes (Other)
  Sender: FDA-Public Use
  Company Number: US-ASTRAZENECA-2011SE36974

PATIENT
  Sex: Female

DRUGS (4)
  1. ARIMIDEX [Suspect]
     Route: 048
  2. SEROQUEL [Suspect]
     Indication: BIPOLAR DISORDER
     Route: 048
  3. SEROQUEL [Suspect]
     Route: 048
  4. SEROQUEL [Suspect]
     Route: 048

REACTIONS (5)
  - SPINAL COLUMN INJURY [None]
  - INTENTIONAL DRUG MISUSE [None]
  - FIBROMYALGIA [None]
  - NEOPLASM MALIGNANT [None]
  - NASOPHARYNGITIS [None]
